FAERS Safety Report 18378792 (Version 2)
Quarter: 2020Q4

REPORT INFORMATION
  Report Type: Spontaneous
  Country: US (occurrence: US)
  Receive Date: 20201013
  Receipt Date: 20201021
  Transmission Date: 20210114
  Serious: No
  Sender: FDA-Public Use
  Company Number: US-MYLANLABS-2020M1085590

PATIENT
  Age: 72 Year
  Sex: Female
  Weight: 122 kg

DRUGS (1)
  1. TRAMADOL HYDROCHLORIDE TABLETS, USP [Suspect]
     Active Substance: TRAMADOL HYDROCHLORIDE
     Indication: PAIN
     Dosage: UNK
     Route: 048
     Dates: start: 20200912, end: 20200915

REACTIONS (3)
  - Hypoacusis [Not Recovered/Not Resolved]
  - Ear disorder [Not Recovered/Not Resolved]
  - Head discomfort [Not Recovered/Not Resolved]

NARRATIVE: CASE EVENT DATE: 20200912
